FAERS Safety Report 7174909-2 (Version None)
Quarter: 2010Q4

REPORT INFORMATION
  Report Type: 
  Country: None (occurrence: None)
  Receive Date: 20101202
  Receipt Date: 20101118
  Transmission Date: 20110411
  Serious: Yes (Other)
  Sender: FDA-Public Use
  Company Number: ES-1184220

PATIENT
  Age: 74 Year
  Sex: Female

DRUGS (1)
  1. TOBRADEX [Suspect]
     Indication: CONJUNCTIVITIS
     Dosage: 1 GTT TID
     Route: 047
     Dates: start: 20101006, end: 20101007

REACTIONS (1)
  - HYPOACUSIS [None]
